FAERS Safety Report 4958330-0 (Version None)
Quarter: 2006Q1

REPORT INFORMATION
  Report Type: 
  Country: None (occurrence: None)
  Receive Date: 20060330
  Receipt Date: 20041022
  Transmission Date: 20060701
  Serious: Yes (Hospitalization)
  Sender: FDA-Public Use
  Company Number: US-SANOFI-SYNTHELABO-F01200403319

PATIENT
  Sex: Female
  Weight: 63 kg

DRUGS (15)
  1. OXALIPLATIN [Suspect]
     Indication: NON-SMALL CELL LUNG CANCER
     Route: 042
     Dates: start: 20041012, end: 20041012
  2. GEMCITABINE [Suspect]
     Route: 042
     Dates: start: 20041019, end: 20041019
  3. SEREVENT [Concomitant]
     Indication: CHRONIC OBSTRUCTIVE PULMONARY DISEASE
     Route: 055
     Dates: start: 19990101
  4. SEREVENT [Concomitant]
     Indication: DYSPNOEA
     Route: 055
     Dates: start: 19990101
  5. SEREVENT [Concomitant]
     Indication: ASTHMA
     Route: 055
     Dates: start: 19990101
  6. ALBUTEROL [Concomitant]
     Indication: CHRONIC OBSTRUCTIVE PULMONARY DISEASE
     Route: 055
     Dates: start: 19990101
  7. ALBUTEROL [Concomitant]
     Indication: DYSPNOEA
     Route: 055
     Dates: start: 19990101
  8. ALBUTEROL [Concomitant]
     Indication: ASTHMA
     Route: 055
     Dates: start: 19990101
  9. LORAZEPAM [Concomitant]
     Indication: NAUSEA
     Dosage: 0.5 MG
     Route: 048
     Dates: start: 20040824, end: 20041026
  10. DURAGESIC-100 [Concomitant]
     Indication: PAIN
     Dosage: 50 MCG
     Route: 062
     Dates: start: 20040823
  11. PREDNISONE [Concomitant]
     Indication: APPETITE DISORDER
     Dosage: 20 MG
     Route: 048
     Dates: start: 20040908, end: 20041012
  12. HYDROMORPHONE [Concomitant]
     Indication: PAIN
     Dosage: 2 MG
     Route: 048
     Dates: start: 20040916, end: 20041118
  13. DECADRON SRC [Concomitant]
     Route: 042
     Dates: start: 20040921
  14. ANZEMET [Concomitant]
     Route: 042
     Dates: start: 20040921
  15. BENADRYL [Concomitant]
     Indication: PARAESTHESIA
     Dosage: 25 MG
     Route: 042
     Dates: start: 20041012, end: 20041012

REACTIONS (5)
  - CHOLECYSTITIS [None]
  - DILATATION INTRAHEPATIC DUCT ACQUIRED [None]
  - ECCHYMOSIS [None]
  - PLATELET COUNT DECREASED [None]
  - PLEURAL EFFUSION [None]
